FAERS Safety Report 14973131 (Version 3)
Quarter: 2018Q3

REPORT INFORMATION
  Report Type: Spontaneous
  Country: US (occurrence: US)
  Receive Date: 20180605
  Receipt Date: 20180817
  Transmission Date: 20181010
  Serious: Yes (Other)
  Sender: FDA-Public Use
  Company Number: US-BAYER-2018-106068

PATIENT
  Age: 25 Year
  Sex: Female
  Weight: 60.77 kg

DRUGS (3)
  1. MIRENA [Suspect]
     Active Substance: LEVONORGESTREL
     Indication: CONTRACEPTION
     Dosage: 20 MCG/24HR, CONT
     Route: 015
     Dates: start: 20180111, end: 20180530
  2. TOPAMAX [Concomitant]
     Active Substance: TOPIRAMATE
     Dosage: 1 DF, BID
     Route: 048
  3. LEXAPRO [Concomitant]
     Active Substance: ESCITALOPRAM OXALATE
     Dosage: 1 DF, QD
     Route: 048

REACTIONS (5)
  - Abdominal pain lower [None]
  - Dyspareunia [None]
  - Device dislocation [None]
  - Pelvic pain [None]
  - Procedural haemorrhage [None]

NARRATIVE: CASE EVENT DATE: 20180530
